FAERS Safety Report 9748804 (Version 1)
Quarter: 2013Q4

REPORT INFORMATION
  Report Type: Spontaneous
  Country: US (occurrence: None)
  Receive Date: 20131211
  Receipt Date: 20131211
  Transmission Date: 20140711
  Serious: Yes (Other)
  Sender: FDA-Public Use
  Company Number: None

PATIENT
  Age: 64 Year
  Sex: Female

DRUGS (1)
  1. FORTEO 20 MCG SQ DAILY LILLY [Suspect]
     Route: 058
     Dates: start: 20121018

REACTIONS (1)
  - Palpitations [None]
